FAERS Safety Report 10030304 (Version 1)
Quarter: 2014Q1

REPORT INFORMATION
  Report Type: Spontaneous
  Country: US (occurrence: US)
  Receive Date: 20140323
  Receipt Date: 20140323
  Transmission Date: 20141002
  Serious: No
  Sender: FDA-Public Use
  Company Number: US-ALLERGAN-1307255US

PATIENT
  Age: 61 Year
  Sex: Female

DRUGS (5)
  1. LATISSE 0.03% [Suspect]
     Indication: GROWTH OF EYELASHES
     Dosage: 2 GTT, QHS
     Route: 061
     Dates: start: 201302
  2. SYSTANE [Concomitant]
     Indication: DRY EYE
  3. GENTEAL                            /00445101/ [Concomitant]
     Indication: DRY EYE
  4. SINGULAIR                          /01362601/ [Concomitant]
     Indication: HYPERSENSITIVITY
  5. SINGULAIR                          /01362601/ [Concomitant]
     Indication: ASTHMA

REACTIONS (4)
  - Wrong technique in drug usage process [Unknown]
  - Trichiasis [Unknown]
  - Skin hyperpigmentation [Unknown]
  - Therapeutic response decreased [Unknown]
